FAERS Safety Report 4280884-0 (Version None)
Quarter: 2004Q1

REPORT INFORMATION
  Report Type: 
  Country: None (occurrence: None)
  Receive Date: 20040128
  Receipt Date: 20040128
  Transmission Date: 20041129
  Serious: Yes (Hospitalization)
  Sender: FDA-Public Use
  Company Number: None

PATIENT
  Age: 59 Year
  Sex: Male

DRUGS (1)
  1. STREPTOKINASE [Suspect]

REACTIONS (11)
  - BINOCULAR EYE MOVEMENT DISORDER [None]
  - CEREBROVASCULAR ACCIDENT [None]
  - COMA [None]
  - EMBOLIC STROKE [None]
  - EXTENSOR PLANTAR RESPONSE [None]
  - HEMIPLEGIA [None]
  - HYPERHIDROSIS [None]
  - HYPERREFLEXIA [None]
  - POSTURE ABNORMAL [None]
  - SIMPLE PARTIAL SEIZURES [None]
  - SINUS DISORDER [None]
